FAERS Safety Report 6811423-5 (Version None)
Quarter: 2010Q2

REPORT INFORMATION
  Report Type: 
  Country: None (occurrence: None)
  Receive Date: 20100630
  Receipt Date: 20100420
  Transmission Date: 20101027
  Serious: No
  Sender: FDA-Public Use
  Company Number: US-AMGEN-KDL407672

PATIENT
  Sex: Female
  Weight: 49 kg

DRUGS (15)
  1. PROCRIT [Suspect]
     Indication: MYELODYSPLASTIC SYNDROME
     Route: 058
     Dates: start: 20090413
  2. LEVOTHYROXINE SODIUM [Concomitant]
  3. VITAMIN B6 [Concomitant]
  4. FOLIC ACID [Concomitant]
  5. CENTRUM [Concomitant]
  6. VITAMIN B-12 [Concomitant]
  7. METOPROLOL TARTRATE [Concomitant]
  8. PLAVIX [Concomitant]
  9. VITAMIN C [Concomitant]
  10. IRON [Concomitant]
  11. NIASPAN [Concomitant]
  12. SIMVASTATIN [Concomitant]
  13. ASPIRIN [Concomitant]
  14. ALLERGY MEDICATION [Concomitant]
  15. FOSAMAX [Concomitant]

REACTIONS (4)
  - FATIGUE [None]
  - HAEMOGLOBIN ABNORMAL [None]
  - OCCULT BLOOD POSITIVE [None]
  - OEDEMA PERIPHERAL [None]
